FAERS Safety Report 8969901 (Version 1)
Quarter: 2012Q4

REPORT INFORMATION
  Report Type: 
  Country: US (occurrence: US)
  Receive Date: 20121218
  Receipt Date: 20121218
  Transmission Date: 20130627
  Serious: Yes (Other)
  Sender: FDA-Public Use
  Company Number: US-BRISTOL-MYERS SQUIBB COMPANY-16220428

PATIENT
  Age: 59 Year
  Sex: Male
  Weight: 118.18 kg

DRUGS (6)
  1. ABILIFY TABS 10 MG [Suspect]
     Indication: BIPOLAR DISORDER
     Dosage: at night
     Dates: start: 2009
  2. LAMOTRIGINE [Concomitant]
  3. STRATTERA [Concomitant]
  4. IMIPRAMINE [Concomitant]
  5. METFORMIN [Concomitant]
  6. NUVIGIL [Concomitant]

REACTIONS (1)
  - Diabetes mellitus [Unknown]
